FAERS Safety Report 7514495-8 (Version None)
Quarter: 2011Q2

REPORT INFORMATION
  Report Type: 
  Country: None (occurrence: None)
  Receive Date: 20110601
  Receipt Date: 20101126
  Transmission Date: 20111010
  Serious: No
  Sender: FDA-Public Use
  Company Number: US-BAYER-2010-004279

PATIENT
  Weight: 89.796 kg

DRUGS (1)
  1. MAGNEVIST [Suspect]
     Dosage: 18 ML, ONCE
     Route: 042

REACTIONS (1)
  - URTICARIA [None]
